FAERS Safety Report 12099041 (Version 2)
Quarter: 2016Q1

REPORT INFORMATION
  Report Type: Spontaneous
  Country: US (occurrence: US)
  Receive Date: 20160222
  Receipt Date: 20160322
  Transmission Date: 20160526
  Serious: Yes (Death, Hospitalization)
  Sender: FDA-Public Use
  Company Number: US-AUROBINDO-AUR-APL-2016-01600

PATIENT
  Age: 44 Year
  Sex: Male

DRUGS (6)
  1. AMPICILLIN [Concomitant]
     Active Substance: AMPICILLIN
     Indication: PRODUCT USED FOR UNKNOWN INDICATION
     Route: 042
  2. AMPHOTERICIN B. [Concomitant]
     Active Substance: AMPHOTERICIN B
     Indication: PRODUCT USED FOR UNKNOWN INDICATION
     Route: 065
  3. SOLU-MEDROL [Suspect]
     Active Substance: METHYLPREDNISOLONE SODIUM SUCCINATE
     Indication: GRAFT VERSUS HOST DISEASE
     Dosage: 2 MG/KG, UNK
     Route: 042
  4. METHYLPREDNISOLONE. [Suspect]
     Active Substance: METHYLPREDNISOLONE
     Indication: GRAFT VERSUS HOST DISEASE
     Dosage: 65 MG, DAILY
     Route: 042
  5. VANCOMYCIN [Concomitant]
     Active Substance: VANCOMYCIN
     Indication: PRODUCT USED FOR UNKNOWN INDICATION
     Route: 065
  6. TACROLIMUS. [Concomitant]
     Active Substance: TACROLIMUS
     Indication: PRODUCT USED FOR UNKNOWN INDICATION

REACTIONS (15)
  - Renal failure [Unknown]
  - Ventricular fibrillation [Unknown]
  - Meningitis viral [Unknown]
  - Muscular weakness [Unknown]
  - Mental status changes [Unknown]
  - Pulmonary oedema [Unknown]
  - Pleural effusion [Unknown]
  - Lymphocyte count increased [Unknown]
  - Paraplegia [Unknown]
  - Monocyte count decreased [Unknown]
  - Herpes zoster meningoencephalitis [Fatal]
  - Atrial fibrillation [Unknown]
  - White blood cell count increased [Unknown]
  - Diarrhoea [Unknown]
  - Condition aggravated [Unknown]
